FAERS Safety Report 8207603-7 (Version None)
Quarter: 2012Q1

REPORT INFORMATION
  Report Type: 
  Country: None (occurrence: None)
  Receive Date: 20120313
  Receipt Date: 20120313
  Transmission Date: 20120608
  Serious: Yes (Other)
  Sender: FDA-Public Use
  Company Number: None

PATIENT
  Sex: Female

DRUGS (2)
  1. PEGASYS [Suspect]
     Dosage: 180MCG QW SQ
     Route: 058
     Dates: start: 20110818
  2. RIBAVIRIN 200MG TABS SANDOZ [Suspect]
     Dosage: 1000MCG DAILY PO
     Route: 048
     Dates: start: 20110818

REACTIONS (3)
  - VASODILATATION [None]
  - EYE DISORDER [None]
  - EYE PAIN [None]
